FAERS Safety Report 5011732-9 (Version None)
Quarter: 2006Q2

REPORT INFORMATION
  Report Type: 
  Country: None (occurrence: None)
  Receive Date: 20060523
  Receipt Date: 20060523
  Transmission Date: 20061013
  Serious: Yes (Life-Threatening)
  Sender: FDA-Public Use
  Company Number: None

PATIENT
  Sex: Male
  Weight: 74.8435 kg

DRUGS (3)
  1. TACROLIMUS OINTMENT 0.03% [Suspect]
     Indication: DERMATITIS
     Dosage: APPLY TO ITCHY AREAS TWICE DAILY TOP
     Route: 061
     Dates: start: 20040302, end: 20040323
  2. TACROLIMUS OINTMENT 0.03% [Suspect]
     Indication: DERMATITIS
     Dosage: APPLY TO ITCHY AREAS TWICE DAILY TOP
     Route: 061
     Dates: start: 20040728, end: 20050104
  3. PROTOPIC [Concomitant]

REACTIONS (1)
  - MALIGNANT FIBROUS HISTIOCYTOMA [None]
